FAERS Safety Report 6239544-9 (Version None)
Quarter: 2009Q2

REPORT INFORMATION
  Report Type: 
  Country: None (occurrence: None)
  Receive Date: 20090618
  Receipt Date: 20090618
  Transmission Date: 20091009
  Serious: No
  Sender: FDA-Public Use
  Company Number: None

PATIENT
  Age: 81 Year
  Sex: Female

DRUGS (1)
  1. METFORMIN HCL [Suspect]
     Indication: DIABETES MELLITUS
     Dosage: ORAL -- 1 TAB 3 TIMES A DAY
     Route: 048
     Dates: start: 20080101

REACTIONS (2)
  - ABDOMINAL DISCOMFORT [None]
  - URINE ODOUR ABNORMAL [None]
